FAERS Safety Report 9236224 (Version 1)
Quarter: 2013Q2

REPORT INFORMATION
  Report Type: Spontaneous
  Country: US (occurrence: None)
  Receive Date: 20130416
  Receipt Date: 20130416
  Transmission Date: 20140414
  Serious: Yes (Other)
  Sender: FDA-Public Use
  Company Number: None

PATIENT
  Sex: Male
  Weight: 56.7 kg

DRUGS (1)
  1. XARELTO [Suspect]
     Indication: VENOUS THROMBOSIS
     Dosage: 20MG AFTER DINNER ORAL
     Route: 048
     Dates: start: 20130329, end: 20130401

REACTIONS (4)
  - Arthritis [None]
  - Joint swelling [None]
  - Spinal pain [None]
  - Musculoskeletal stiffness [None]
